FAERS Safety Report 13900576 (Version 1)
Quarter: 2017Q3

REPORT INFORMATION
  Report Type: Spontaneous
  Country: FR (occurrence: FR)
  Receive Date: 20170824
  Receipt Date: 20170824
  Transmission Date: 20171127
  Serious: Yes (Hospitalization, Other)
  Sender: FDA-Public Use
  Company Number: FR-MYLANLABS-2017M1052197

PATIENT

DRUGS (1)
  1. DILTIAZEM. [Suspect]
     Active Substance: DILTIAZEM
     Indication: PRODUCT USED FOR UNKNOWN INDICATION
     Dosage: 8.4G
     Route: 048

REACTIONS (5)
  - Overdose [Recovering/Resolving]
  - Toxicity to various agents [Recovering/Resolving]
  - Shock [Recovering/Resolving]
  - Acute kidney injury [Recovered/Resolved]
  - Lactic acidosis [Recovering/Resolving]
